FAERS Safety Report 7861383-3 (Version None)
Quarter: 2011Q4

REPORT INFORMATION
  Report Type: 
  Country: None (occurrence: None)
  Receive Date: 20111027
  Receipt Date: 20111018
  Transmission Date: 20120403
  Serious: Yes (Death)
  Sender: FDA-Public Use
  Company Number: GB-TEVA-305540ISR

PATIENT
  Age: 18 Year
  Sex: Male

DRUGS (1)
  1. RISPERIDONE [Suspect]

REACTIONS (3)
  - TRISOMY 21 [None]
  - INFECTIOUS PERITONITIS [None]
  - INTESTINAL PERFORATION [None]
